FAERS Safety Report 7104750-8 (Version None)
Quarter: 2010Q4

REPORT INFORMATION
  Report Type: 
  Country: None (occurrence: None)
  Receive Date: 20101109
  Receipt Date: 20101104
  Transmission Date: 20110411
  Serious: Yes (Life-Threatening, Disabling, Other)
  Sender: FDA-Public Use
  Company Number: UKP10000116

PATIENT
  Age: 67 Year
  Sex: Female
  Weight: 74 kg

DRUGS (9)
  1. ACTONEL [Suspect]
     Dosage: ORAL
     Route: 048
     Dates: start: 20071204
  2. ALENDRONATE SODIUM [Suspect]
     Dosage: ORAL
     Route: 048
     Dates: start: 20071012
  3. AMITRIPTYLINE HYDROCHLORIDE [Suspect]
     Dates: start: 20100216
  4. AMLODIPINE [Suspect]
     Dates: start: 20071012
  5. CIPROFLOXACIN [Suspect]
     Dates: start: 20071012
  6. FOSAMAX [Suspect]
     Dosage: ORAL
     Route: 048
     Dates: start: 20071204
  7. LOSARTAN POTASSIUM [Suspect]
     Indication: HYPERTENSION
     Dosage: 100 MG, 1/DAY, ORAL
     Route: 048
     Dates: start: 20070221, end: 20100729
  8. AMITRIPTYLINE HYDROCHLORIDE [Concomitant]
  9. LANSOPRAZOLE [Concomitant]

REACTIONS (8)
  - ABDOMINAL PAIN UPPER [None]
  - ARTHRALGIA [None]
  - DIARRHOEA [None]
  - HEART RATE INCREASED [None]
  - HYPERTENSION [None]
  - IRRITABLE BOWEL SYNDROME [None]
  - NAUSEA [None]
  - PANIC ATTACK [None]
